FAERS Safety Report 4308635-1 (Version None)
Quarter: 2004Q1

REPORT INFORMATION
  Report Type: 
  Country: None (occurrence: None)
  Receive Date: 20040301
  Receipt Date: 20031111
  Transmission Date: 20041129
  Serious: Yes (Other)
  Sender: FDA-Public Use
  Company Number: A0439178A

PATIENT
  Age: 27 Year
  Sex: Female

DRUGS (1)
  1. NICODERM CQ [Suspect]
     Indication: EX-SMOKER
     Dosage: 21 MG / TRANSDERMAL
     Route: 062
     Dates: start: 20031105, end: 20031111

REACTIONS (3)
  - CHEST PAIN [None]
  - HAEMOPTYSIS [None]
  - MEDICATION ERROR [None]
